FAERS Safety Report 14677853 (Version 2)
Quarter: 2018Q4

REPORT INFORMATION
  Report Type: Spontaneous
  Country: FR (occurrence: FR)
  Receive Date: 20180326
  Receipt Date: 20181025
  Transmission Date: 20190204
  Serious: Yes (Other)
  Sender: FDA-Public Use
  Company Number: FR-MERCK KGAA-2044476

PATIENT
  Age: 69 Year
  Sex: Female

DRUGS (1)
  1. EUTHYROX [Suspect]
     Active Substance: LEVOTHYROXINE SODIUM
     Indication: PRODUCT USED FOR UNKNOWN INDICATION

REACTIONS (20)
  - Hyperthyroidism [Recovering/Resolving]
  - Weight increased [Recovering/Resolving]
  - Fear-related avoidance of activities [Recovering/Resolving]
  - Blood thyroid stimulating hormone decreased [Recovered/Resolved]
  - Anger [Recovering/Resolving]
  - Mood swings [Recovering/Resolving]
  - Arthralgia [Recovering/Resolving]
  - Decreased interest [Recovering/Resolving]
  - Hypothyroidism [Recovering/Resolving]
  - Muscle spasms [Recovering/Resolving]
  - Malaise [Recovering/Resolving]
  - Apathy [Recovering/Resolving]
  - Fine motor skill dysfunction [Recovering/Resolving]
  - Blood pressure increased [Recovering/Resolving]
  - Sleep disorder [Recovering/Resolving]
  - Personal relationship issue [Recovering/Resolving]
  - Social problem [Recovering/Resolving]
  - Vertigo [Recovering/Resolving]
  - Anxiety [Recovering/Resolving]
  - Decreased activity [Recovering/Resolving]

NARRATIVE: CASE EVENT DATE: 2017
